FAERS Safety Report 14198975 (Version 3)
Quarter: 2017Q4

REPORT INFORMATION
  Report Type: Spontaneous
  Country: CA (occurrence: CA)
  Receive Date: 20171117
  Receipt Date: 20171225
  Transmission Date: 20180321
  Serious: Yes (Life-Threatening, Other)
  Sender: FDA-Public Use
  Company Number: CA-AMGEN-CANSP2017171017

PATIENT
  Age: 52 Year
  Sex: Male
  Weight: 76.4 kg

DRUGS (15)
  1. ARANESP [Suspect]
     Active Substance: DARBEPOETIN ALFA
     Indication: NEPHROGENIC ANAEMIA
     Dosage: 30 MCG, QWK
     Route: 058
     Dates: start: 20160621, end: 201701
  2. ARANESP [Suspect]
     Active Substance: DARBEPOETIN ALFA
     Dosage: 40 MCG, QWK
     Route: 058
     Dates: start: 201701, end: 201704
  3. ARANESP [Suspect]
     Active Substance: DARBEPOETIN ALFA
     Dosage: 50 MCG, QWK
     Route: 058
     Dates: start: 201704, end: 201706
  4. ARANESP [Suspect]
     Active Substance: DARBEPOETIN ALFA
     Dosage: 150 MCG, QWK
     Route: 058
     Dates: start: 201710, end: 20171104
  5. NEXIUM [Concomitant]
     Active Substance: ESOMEPRAZOLE MAGNESIUM
     Dosage: 40 MG, QD
     Route: 048
     Dates: start: 20120919
  6. PREDNISONE. [Concomitant]
     Active Substance: PREDNISONE
     Dosage: 15 MG, QOD
     Route: 048
     Dates: start: 20171114
  7. PREDNISONE. [Concomitant]
     Active Substance: PREDNISONE
     Dosage: 75 MG, QD
     Route: 048
     Dates: start: 20171114
  8. AZATHIOPRINE. [Concomitant]
     Active Substance: AZATHIOPRINE
     Dosage: 100 MG, QD
     Dates: start: 20160803
  9. EZETIMIBE. [Concomitant]
     Active Substance: EZETIMIBE
     Dosage: 10 MG, QD
     Route: 048
     Dates: start: 20130904
  10. FOSAMAX [Concomitant]
     Active Substance: ALENDRONATE SODIUM
     Dosage: 70 MG, QWK
     Route: 048
     Dates: start: 20130227
  11. ARANESP [Suspect]
     Active Substance: DARBEPOETIN ALFA
     Dosage: 50 MCG, Q2WK
     Route: 058
     Dates: start: 201706, end: 201710
  12. ROCALTROL [Concomitant]
     Active Substance: CALCITRIOL
     Dosage: 0.25 MCG, QD
     Route: 048
     Dates: start: 20060519
  13. LIPITOR [Concomitant]
     Active Substance: ATORVASTATIN CALCIUM
     Dosage: 80 MG, QD
     Route: 048
     Dates: start: 20130227
  14. IMURAN [Concomitant]
     Active Substance: AZATHIOPRINE
     Dosage: 50 MG, QD
     Route: 048
     Dates: start: 20171103
  15. ARANESP [Suspect]
     Active Substance: DARBEPOETIN ALFA
     Dosage: 150 MCG, UNK
     Route: 058
     Dates: start: 20171104

REACTIONS (4)
  - Platelet count decreased [Not Recovered/Not Resolved]
  - Aplasia pure red cell [Not Recovered/Not Resolved]
  - Bone marrow failure [Not Recovered/Not Resolved]
  - Parvovirus infection [Unknown]

NARRATIVE: CASE EVENT DATE: 20171015
